FAERS Safety Report 7035705-X (Version None)
Quarter: 2010Q4

REPORT INFORMATION
  Report Type: 
  Country: None (occurrence: None)
  Receive Date: 20101008
  Receipt Date: 20100928
  Transmission Date: 20110411
  Serious: Yes (Hospitalization, Other)
  Sender: FDA-Public Use
  Company Number: US-ABBOTT-10P-163-0674603-00

PATIENT
  Sex: Female
  Weight: 67.646 kg

DRUGS (12)
  1. NIASPAN [Suspect]
     Indication: HIGH DENSITY LIPOPROTEIN DECREASED
     Dosage: NIGHTLY
     Dates: start: 20100629, end: 20100901
  2. NIASPAN [Suspect]
     Dosage: NIGHTLY
     Dates: start: 20100925
  3. CIPRO [Suspect]
     Indication: BRONCHITIS
     Dates: start: 20100925, end: 20100927
  4. PLAVIX [Concomitant]
     Indication: MYOCARDIAL INFARCTION
     Dosage: Q AM
     Dates: start: 20100629
  5. LISINOPRIL [Concomitant]
     Indication: MYOCARDIAL INFARCTION
     Dates: start: 20100629
  6. COREG [Concomitant]
     Indication: MYOCARDIAL INFARCTION
     Dosage: 2 IN PM
     Dates: start: 20100629
  7. SIMVASTATIN [Concomitant]
     Indication: BLOOD CHOLESTEROL INCREASED
  8. ADVAIR DISKUS 100/50 [Concomitant]
     Indication: ASTHMA
  9. CLARITIN [Concomitant]
     Indication: SEASONAL ALLERGY
  10. MUCINEX DM [Concomitant]
     Indication: SEASONAL ALLERGY
  11. ASPIRIN [Concomitant]
     Indication: MYOCARDIAL INFARCTION
     Dosage: EVERY AM
  12. PREVACID [Concomitant]
     Indication: ULCER
     Route: 048

REACTIONS (11)
  - BRONCHITIS [None]
  - DIZZINESS [None]
  - ERYTHEMA [None]
  - HAEMORRHAGE [None]
  - HEAD INJURY [None]
  - LOSS OF CONSCIOUSNESS [None]
  - NAUSEA [None]
  - PRURITUS [None]
  - RASH [None]
  - TREMOR [None]
  - ULCER [None]
